FAERS Safety Report 7074446-X (Version None)
Quarter: 2010Q4

REPORT INFORMATION
  Report Type: 
  Country: None (occurrence: None)
  Receive Date: 20101029
  Receipt Date: 20101025
  Transmission Date: 20110411
  Serious: Yes (Life-Threatening, Hospitalization, Other)
  Sender: FDA-Public Use
  Company Number: GB-JNJFOC-20101006752

PATIENT
  Age: 36 Year
  Sex: Male

DRUGS (7)
  1. TOPIRAMATE [Suspect]
     Indication: CONVULSION
     Route: 048
  2. TOPIRAMATE [Suspect]
     Indication: MIGRAINE PROPHYLAXIS
     Route: 048
  3. PARACETAMOL [Suspect]
     Indication: HEADACHE
     Route: 065
  4. PARACETAMOL [Suspect]
     Dosage: 80-100 TABLETS
     Route: 065
  5. DIHYDROCODEINE BITARTRATE INJ [Suspect]
     Indication: HEADACHE
     Route: 065
  6. DIHYDROCODEINE BITARTRATE INJ [Suspect]
     Route: 065
  7. ALCOHOL [Suspect]
     Indication: PRODUCT USED FOR UNKNOWN INDICATION
     Dosage: 4 CANS OF LAGER
     Route: 065

REACTIONS (2)
  - OVERDOSE [None]
  - SUICIDE ATTEMPT [None]
